FAERS Safety Report 21861604 (Version 3)
Quarter: 2023Q2

REPORT INFORMATION
  Report Type: Report from Study
  Country: US (occurrence: US)
  Receive Date: 20230113
  Receipt Date: 20230418
  Transmission Date: 20230722
  Serious: No
  Sender: FDA-Public Use
  Company Number: US-ABBVIE-4233864

PATIENT
  Sex: Female

DRUGS (2)
  1. RINVOQ [Suspect]
     Active Substance: UPADACITINIB
     Indication: Rheumatoid arthritis
     Route: 048
     Dates: start: 20230324
  2. RINVOQ [Suspect]
     Active Substance: UPADACITINIB
     Indication: Rheumatoid arthritis
     Dosage: LAST ADMIN DATE- 2023
     Route: 048
     Dates: start: 20230202

REACTIONS (4)
  - Pain [Unknown]
  - Nasopharyngitis [Unknown]
  - Rheumatoid arthritis [Unknown]
  - Lower respiratory tract infection [Recovering/Resolving]
